FAERS Safety Report 4757499-0 (Version None)
Quarter: 2005Q3

REPORT INFORMATION
  Report Type: 
  Country: None (occurrence: None)
  Receive Date: 20050831
  Receipt Date: 20050414
  Transmission Date: 20060218
  Serious: Yes (Other)
  Sender: FDA-Public Use
  Company Number: US-MERCK-0504USA02860

PATIENT
  Age: 60 Year
  Sex: Female
  Weight: 91 kg

DRUGS (10)
  1. VIOXX [Suspect]
     Indication: OSTEOARTHRITIS
     Route: 048
     Dates: start: 20010401, end: 20040801
  2. IBUPROFEN [Concomitant]
     Route: 065
  3. ESTRATEST [Concomitant]
     Route: 065
     Dates: start: 19950101, end: 20050101
  4. BAYCOL [Concomitant]
     Route: 065
  5. DIOVAN [Concomitant]
     Route: 065
  6. HYDROCHLOROTHIAZIDE [Concomitant]
     Route: 065
  7. PRAVACHOL [Concomitant]
     Route: 065
  8. NASONEX [Concomitant]
     Route: 065
  9. ZOLOFT [Concomitant]
     Route: 065
  10. NORVASC [Concomitant]
     Route: 065

REACTIONS (7)
  - CARDIAC DISORDER [None]
  - CEREBROVASCULAR ACCIDENT [None]
  - DYSPNOEA [None]
  - HYPERTENSION [None]
  - MYOCARDIAL INFARCTION [None]
  - OEDEMA PERIPHERAL [None]
  - TRANSIENT ISCHAEMIC ATTACK [None]
